FAERS Safety Report 9040293 (Version 1)
Quarter: 2013Q1

REPORT INFORMATION
  Report Type: Spontaneous
  Country: US (occurrence: US)
  Receive Date: 20130129
  Receipt Date: 20130129
  Transmission Date: 20140127
  Serious: Yes (Hospitalization)
  Sender: FDA-Public Use
  Company Number: US-ABBOTT-11P-163-0882344-00

PATIENT
  Sex: Male

DRUGS (2)
  1. HUMIRA 40 MG/0.8 ML PEN [Suspect]
     Indication: PSORIASIS
     Route: 058
     Dates: start: 20111120, end: 201201
  2. DANAZOL [Concomitant]
     Indication: THROMBOCYTOPENIA

REACTIONS (6)
  - Cellulitis [Not Recovered/Not Resolved]
  - Local swelling [Unknown]
  - Drug reaction with eosinophilia and systemic symptoms [Unknown]
  - Hepatic enzyme increased [Unknown]
  - Periorbital oedema [Unknown]
  - Rash [Unknown]
